FAERS Safety Report 10529279 (Version 2)
Quarter: 2014Q4

REPORT INFORMATION
  Report Type: Report from Study
  Country: US (occurrence: US)
  Receive Date: 20141020
  Receipt Date: 20141128
  Transmission Date: 20150528
  Serious: Yes (Death)
  Sender: FDA-Public Use
  Company Number: PHEH2014US020902

PATIENT
  Sex: Male
  Weight: 57 kg

DRUGS (3)
  1. EXJADE [Suspect]
     Active Substance: DEFERASIROX
     Indication: HAEMOCHROMATOSIS
  2. EXJADE [Suspect]
     Active Substance: DEFERASIROX
     Indication: MYELOFIBROSIS
     Dosage: 1125 MG, DAILY (ONE TABLET OF 125 MG AND TWO TABLET OF 500 MG, DAILY)
     Route: 048
     Dates: start: 201405
  3. EXJADE [Suspect]
     Active Substance: DEFERASIROX
     Indication: ANAEMIA

REACTIONS (1)
  - Cardiac arrest [Fatal]
